FAERS Safety Report 22641018 (Version 1)
Quarter: 2023Q2

REPORT INFORMATION
  Report Type: Spontaneous
  Country: NL (occurrence: NL)
  Receive Date: 20230626
  Receipt Date: 20230626
  Transmission Date: 20230722
  Serious: Yes (Life-Threatening, Hospitalization)
  Sender: FDA-Public Use
  Company Number: NL-AMGEN-NLDSP2023109274

PATIENT
  Sex: Male
  Weight: 84 kg

DRUGS (4)
  1. PROLIA [Suspect]
     Active Substance: DENOSUMAB
     Indication: Osteoporotic fracture
     Dosage: 60 MILLIGRAM PER MILLILITER
     Route: 065
     Dates: start: 20230520, end: 20230523
  2. CALCIUM CARBONATE\CHOLECALCIFEROL [Concomitant]
     Active Substance: CALCIUM CARBONATE\CHOLECALCIFEROL
     Dosage: 500MG/800IE 3 TIMES DAILY 2 PIECES
     Route: 065
  3. CALCIUMGLUCONAAT [Concomitant]
     Dosage: MULTIPLE TIMES 10MG
     Route: 065
  4. ALFACALCIDOL [Concomitant]
     Active Substance: ALFACALCIDOL
     Dosage: 2 MICROGRAM, QD
     Route: 065

REACTIONS (1)
  - Hypocalcaemic seizure [Recovering/Resolving]
